FAERS Safety Report 9988640 (Version 2)
Quarter: 2014Q2

REPORT INFORMATION
  Report Type: Spontaneous
  Country: IT (occurrence: IT)
  Receive Date: 20140310
  Receipt Date: 20140416
  Transmission Date: 20141212
  Serious: Yes (Hospitalization)
  Sender: FDA-Public Use
  Company Number: IT-RANBAXY-2014RR-78659

PATIENT
  Age: 57 Year
  Sex: Female

DRUGS (4)
  1. AMOXICILLIN [Suspect]
     Indication: ORTHODONTIC PROCEDURE
     Dosage: 1 DOSAGE UNIT COMPLETE
     Route: 048
     Dates: start: 20140120, end: 20140120
  2. KETOPROFEN [Suspect]
     Indication: ORTHODONTIC PROCEDURE
     Dosage: 1 DOSAGE UNIT COMPLETE
     Route: 048
     Dates: start: 20140120, end: 20140120
  3. TRIATEC [Concomitant]
     Indication: PRODUCT USED FOR UNKNOWN INDICATION
     Dosage: 5 MG, UNK
     Route: 048
  4. DIABASE [Concomitant]
     Indication: PRODUCT USED FOR UNKNOWN INDICATION
     Dosage: 2.5 ML, UNK
     Route: 048

REACTIONS (3)
  - Chest pain [Recovered/Resolved]
  - Erythema [Recovered/Resolved]
  - Skin reaction [Recovered/Resolved]
